FAERS Safety Report 21780856 (Version 1)
Quarter: 2022Q4

REPORT INFORMATION
  Report Type: Report from Study
  Country: US (occurrence: US)
  Receive Date: 20221227
  Receipt Date: 20221227
  Transmission Date: 20230113
  Serious: No
  Sender: FDA-Public Use
  Company Number: US-ABBVIE-4210590

PATIENT
  Age: 58 Year
  Sex: Female

DRUGS (1)
  1. HUMIRA [Suspect]
     Active Substance: ADALIMUMAB
     Indication: Psoriasis
     Dosage: FORM STRENGTH: 40 MG, CF
     Route: 058
     Dates: start: 2021, end: 20221103

REACTIONS (3)
  - Urticaria [Unknown]
  - Erythema [Unknown]
  - Stress [Unknown]

NARRATIVE: CASE EVENT DATE: 20221114
